FAERS Safety Report 12211561 (Version 2)
Quarter: 2016Q2

REPORT INFORMATION
  Report Type: Report from Study
  Country: BR (occurrence: BR)
  Receive Date: 20160325
  Receipt Date: 20160510
  Transmission Date: 20160815
  Serious: Yes (Hospitalization)
  Sender: FDA-Public Use
  Company Number: BR-ABBVIE-15K-020-1519414-00

PATIENT
  Age: 65 Year
  Sex: Female
  Weight: 47 kg

DRUGS (12)
  1. HUMIRA [Suspect]
     Active Substance: ADALIMUMAB
     Indication: RHEUMATOID ARTHRITIS
     Route: 058
     Dates: start: 20140730, end: 2016
  2. PANTOPRAZOLE [Concomitant]
     Active Substance: PANTOPRAZOLE SODIUM
     Indication: GASTRIC DISORDER
     Route: 048
  3. HUMIRA [Suspect]
     Active Substance: ADALIMUMAB
     Route: 058
     Dates: start: 20160429
  4. DEFLAIMMUN [Concomitant]
     Indication: ARTHRALGIA
     Route: 048
  5. NIMESULIDE [Concomitant]
     Active Substance: NIMESULIDE
     Indication: ARTHRITIS
     Route: 048
  6. ALENDRONATE SODIUM. [Concomitant]
     Active Substance: ALENDRONATE SODIUM
     Indication: OSTEOPOROSIS
     Route: 048
     Dates: start: 2015
  7. NIMESULIDE [Concomitant]
     Active Substance: NIMESULIDE
     Route: 048
  8. CALCIUM [Concomitant]
     Active Substance: CALCIUM
     Indication: OSTEOPOROSIS
     Route: 048
     Dates: start: 2013
  9. ZOLPIDEM [Concomitant]
     Active Substance: ZOLPIDEM\ZOLPIDEM TARTRATE
     Indication: SEDATIVE THERAPY
     Route: 048
     Dates: start: 201501
  10. FIXA CAL [Concomitant]
     Active Substance: MINERALS\VITAMINS
     Indication: OSTEOPOROSIS
     Route: 048
     Dates: start: 2015
  11. CALCIUM W/COLECALCIFEROL [Concomitant]
     Active Substance: CALCIUM\CHOLECALCIFEROL
     Indication: OSTEOARTHRITIS
     Route: 048
     Dates: start: 2015
  12. PANTOPRAZOLE [Concomitant]
     Active Substance: PANTOPRAZOLE SODIUM
     Indication: ARTHRITIS

REACTIONS (18)
  - Alopecia [Not Recovered/Not Resolved]
  - Depression [Recovered/Resolved]
  - Peripheral swelling [Recovering/Resolving]
  - Pruritus [Not Recovered/Not Resolved]
  - Insomnia [Recovering/Resolving]
  - Erythema [Not Recovered/Not Resolved]
  - Pain [Unknown]
  - Cutis laxa [Not Recovered/Not Resolved]
  - Cataract [Not Recovered/Not Resolved]
  - Nausea [Recovering/Resolving]
  - Joint swelling [Not Recovered/Not Resolved]
  - Gastric disorder [Recovering/Resolving]
  - Gait disturbance [Unknown]
  - Depression [Recovering/Resolving]
  - Weight decreased [Not Recovered/Not Resolved]
  - Mobility decreased [Recovering/Resolving]
  - Muscle atrophy [Not Recovered/Not Resolved]
  - Skin wrinkling [Not Recovered/Not Resolved]

NARRATIVE: CASE EVENT DATE: 20140901
